FAERS Safety Report 4666822-7 (Version None)
Quarter: 2005Q2

REPORT INFORMATION
  Report Type: 
  Country: None (occurrence: None)
  Receive Date: 20050519
  Receipt Date: 20050510
  Transmission Date: 20051028
  Serious: Yes (Hospitalization)
  Sender: FDA-Public Use
  Company Number: GB-MERCK-0505GBR00093

PATIENT
  Age: 65 Year
  Sex: Male

DRUGS (3)
  1. INDOCIN [Suspect]
     Indication: GOUT
     Route: 048
     Dates: start: 20050328, end: 20050416
  2. BENDROFLUMETHIAZIDE [Concomitant]
     Route: 048
     Dates: start: 20030402
  3. RAMIPRIL [Concomitant]
     Route: 048
     Dates: start: 20021120

REACTIONS (6)
  - DUODENITIS [None]
  - GASTRIC ULCER [None]
  - GASTRITIS [None]
  - HAEMATEMESIS [None]
  - HIATUS HERNIA [None]
  - REFLUX OESOPHAGITIS [None]
